FAERS Safety Report 6447165-8 (Version None)
Quarter: 2009Q4

REPORT INFORMATION
  Report Type: 
  Country: None (occurrence: None)
  Receive Date: 20091119
  Receipt Date: 20091109
  Transmission Date: 20100525
  Serious: Yes (Hospitalization)
  Sender: FDA-Public Use
  Company Number: US-PFIZER INC-2009295576

PATIENT
  Sex: Male
  Weight: 85.261 kg

DRUGS (9)
  1. CADUET [Suspect]
     Indication: HYPERTENSION
     Route: 048
  2. LOPID [Concomitant]
  3. NIASPAN [Concomitant]
     Dosage: 500 MG, 1X/DAY
     Route: 048
  4. TRIAMTERENE [Concomitant]
     Route: 048
  5. ASPIRIN [Concomitant]
     Dosage: UNK
  6. PROVIGIL [Concomitant]
     Dosage: 200 MG, UNK
     Route: 048
  7. ZANTAC [Concomitant]
     Dosage: FREQUENCY: 2X/DAILY,
     Route: 048
  8. BUPRENORPHINE HYDROCHLORIDE/NALOXONE HYDROCHLORIDE [Concomitant]
     Dosage: 2 MG, UNK
     Route: 048
  9. CIALIS [Concomitant]
     Dosage: FREQUENCY: AS NEEDED,
     Route: 048

REACTIONS (3)
  - OEDEMA PERIPHERAL [None]
  - PNEUMONIA [None]
  - URTICARIA [None]
